FAERS Safety Report 5321456-6 (Version None)
Quarter: 2007Q2

REPORT INFORMATION
  Report Type: 
  Country: None (occurrence: None)
  Receive Date: 20070510
  Receipt Date: 20070507
  Transmission Date: 20071010
  Serious: Yes (Life-Threatening, Hospitalization)
  Sender: FDA-Public Use
  Company Number: B0464345A

PATIENT
  Age: 29 Year
  Sex: Female
  Weight: 46 kg

DRUGS (1)
  1. CLAMOXYL [Suspect]
     Dosage: 1G SINGLE DOSE
     Route: 048
     Dates: start: 20070321, end: 20070321

REACTIONS (15)
  - ANAPHYLACTIC SHOCK [None]
  - ANXIETY [None]
  - CHEST PAIN [None]
  - CONJUNCTIVAL HYPERAEMIA [None]
  - FEELING COLD [None]
  - FLUSHING [None]
  - HEADACHE [None]
  - MALAISE [None]
  - PALLOR [None]
  - PALPITATIONS [None]
  - PELVIC PAIN [None]
  - RASH ERYTHEMATOUS [None]
  - RENAL COLIC [None]
  - SENSORY DISTURBANCE [None]
  - URINARY TRACT INFECTION [None]
